FAERS Safety Report 5508706-8 (Version None)
Quarter: 2007Q4

REPORT INFORMATION
  Report Type: 
  Country: None (occurrence: None)
  Receive Date: 20071031
  Receipt Date: 20070601
  Transmission Date: 20080405
  Serious: No
  Sender: FDA-Public Use
  Company Number: D2007PV032984

PATIENT
  Age: 50 Year
  Sex: Female
  Weight: 63.5036 kg

DRUGS (3)
  1. SYMLIN [Suspect]
     Indication: TYPE 1 DIABETES MELLITUS
     Dosage: 6 MCG;QD;SC
     Route: 058
     Dates: start: 20070531, end: 20070531
  2. LANTUS [Concomitant]
  3. HUMALOG [Concomitant]

REACTIONS (2)
  - MYALGIA [None]
  - RASH PAPULAR [None]
